FAERS Safety Report 8401928-8 (Version None)
Quarter: 2012Q2

REPORT INFORMATION
  Report Type: 
  Country: None (occurrence: None)
  Receive Date: 20120601
  Receipt Date: 20120525
  Transmission Date: 20120825
  Serious: Yes (Hospitalization)
  Sender: FDA-Public Use
  Company Number: US-PFIZER INC-2012081265

PATIENT
  Sex: Male
  Weight: 78.005 kg

DRUGS (5)
  1. VIAGRA [Suspect]
     Indication: ERECTILE DYSFUNCTION
     Dosage: 100 MG, AS NEEDED
     Route: 048
     Dates: end: 20090101
  2. KLONOPIN [Concomitant]
     Indication: ANXIETY
     Dosage: UNK
  3. VIAGRA [Suspect]
     Dosage: 50 MG, AS NEEDED
     Route: 048
  4. VIAGRA [Suspect]
     Dosage: 100 MG, AS NEEDED
     Route: 048
  5. VIAGRA [Suspect]
     Dosage: 150 MG, AS NEEDED
     Route: 048
     Dates: end: 20090101

REACTIONS (5)
  - GASTRIC DISORDER [None]
  - CHOLELITHIASIS [None]
  - PAIN [None]
  - DEPRESSION [None]
  - ABDOMINAL PAIN [None]
